FAERS Safety Report 9253923 (Version 1)
Quarter: 2013Q2

REPORT INFORMATION
  Report Type: Spontaneous
  Country: US (occurrence: None)
  Receive Date: 20130422
  Receipt Date: 20130422
  Transmission Date: 20140414
  Serious: No
  Sender: FDA-Public Use
  Company Number: None

PATIENT
  Age: 30 Year
  Sex: Female
  Weight: 84.9 kg

DRUGS (1)
  1. SEROQUEL [Suspect]
     Dosage: 800 MG  QHS  PO
     Route: 048
     Dates: start: 20130419, end: 20130419

REACTIONS (1)
  - Dyskinesia [None]
